FAERS Safety Report 7311716-1 (Version None)
Quarter: 2011Q1

REPORT INFORMATION
  Report Type: 
  Country: None (occurrence: None)
  Receive Date: 20110224
  Receipt Date: 20110119
  Transmission Date: 20110831
  Serious: Yes (Other)
  Sender: FDA-Public Use
  Company Number: PHFR2011GB00801

PATIENT
  Sex: Male

DRUGS (2)
  1. CLOZARIL [Suspect]
     Route: 048
     Dates: start: 20100910
  2. CLOZARIL [Suspect]
     Dosage: 125MG
     Route: 048
     Dates: start: 20110119

REACTIONS (3)
  - MEDICATION ERROR [None]
  - FEELING ABNORMAL [None]
  - SOMNOLENCE [None]
